FAERS Safety Report 5131474-9 (Version None)
Quarter: 2006Q4

REPORT INFORMATION
  Report Type: 
  Country: None (occurrence: None)
  Receive Date: 20061020
  Receipt Date: 20061016
  Transmission Date: 20070319
  Serious: Yes (Life-Threatening)
  Sender: FDA-Public Use
  Company Number: IT-SANOFI-SYNTHELABO-A06200600341

PATIENT
  Sex: Female

DRUGS (2)
  1. ELOXATIN [Suspect]
     Indication: COLON CANCER
     Route: 041
     Dates: start: 20060925, end: 20060925
  2. ELOXATIN [Suspect]
     Route: 041
     Dates: start: 20060925, end: 20060925

REACTIONS (2)
  - DRUG HYPERSENSITIVITY [None]
  - LARYNGOSPASM [None]
